FAERS Safety Report 12384043 (Version 1)
Quarter: 2016Q2

REPORT INFORMATION
  Report Type: Spontaneous
  Country: US (occurrence: US)
  Receive Date: 20160519
  Receipt Date: 20160519
  Transmission Date: 20160815
  Serious: Yes (Hospitalization, Other)
  Sender: FDA-Public Use
  Company Number: US-009507513-1605USA004821

PATIENT
  Sex: Male

DRUGS (1)
  1. BELSOMRA [Suspect]
     Active Substance: SUVOREXANT
     Indication: INSOMNIA
     Dosage: TOOK A 10 MG DOSE AND FEW HOURS LATER TOOK ANOTHER DOSE OF 10 MG
     Route: 048

REACTIONS (2)
  - Sudden onset of sleep [Unknown]
  - Inappropriate schedule of drug administration [Unknown]
